FAERS Safety Report 14651565 (Version 1)
Quarter: 2018Q1

REPORT INFORMATION
  Report Type: Spontaneous
  Country: NL (occurrence: NL)
  Receive Date: 20180317
  Receipt Date: 20180317
  Transmission Date: 20180509
  Serious: Yes (Death)
  Sender: FDA-Public Use
  Company Number: NL-SUN PHARMACEUTICAL INDUSTRIES LTD-2018RR-166834

PATIENT
  Sex: Female

DRUGS (2)
  1. SERTRALINE [Suspect]
     Active Substance: SERTRALINE HYDROCHLORIDE
     Indication: POST-TRAUMATIC STRESS DISORDER
     Dosage: 150 MG
     Route: 065
     Dates: start: 20170201
  2. SEROQUEL [Suspect]
     Active Substance: QUETIAPINE FUMARATE
     Indication: POST-TRAUMATIC STRESS DISORDER
     Dosage: 25 MG
     Route: 065

REACTIONS (1)
  - Death neonatal [Fatal]

NARRATIVE: CASE EVENT DATE: 20171014
